FAERS Safety Report 20761413 (Version 7)
Quarter: 2025Q3

REPORT INFORMATION
  Report Type: Report from Study
  Country: KR (occurrence: KR)
  Receive Date: 20220428
  Receipt Date: 20250919
  Transmission Date: 20251020
  Serious: Yes (Hospitalization, Other)
  Sender: TAKEDA
  Company Number: KR-TAKEDA-2022TUS027093

PATIENT
  Age: 19 Year
  Sex: Male
  Weight: 50 kg

DRUGS (12)
  1. VEDOLIZUMAB [Suspect]
     Active Substance: VEDOLIZUMAB
     Indication: Colitis ulcerative
  2. Feroba you sr [Concomitant]
     Indication: Anaemia prophylaxis
     Dosage: UNK UNK, QD
     Dates: start: 20171119
  3. Solondo [Concomitant]
     Dosage: 15 MILLIGRAM, QD
     Dates: start: 20210715, end: 20210805
  4. Solondo [Concomitant]
     Dosage: 50 MILLIGRAM, QD
     Dates: start: 20210806, end: 20210812
  5. Solondo [Concomitant]
     Dosage: 40 MILLIGRAM, QD
     Dates: start: 20210813, end: 20210819
  6. Solondo [Concomitant]
     Dosage: 30 MILLIGRAM, QD
     Dates: start: 20210820, end: 20210901
  7. Solondo [Concomitant]
     Dosage: 25 MILLIGRAM, QD
     Dates: start: 20210902, end: 20210915
  8. Solondo [Concomitant]
     Dosage: 20 MILLIGRAM, QD
     Dates: start: 20210916, end: 20210929
  9. Solondo [Concomitant]
     Dosage: 15 MILLIGRAM, QD
     Dates: start: 20210930, end: 20211013
  10. AZATHIOPRINE [Concomitant]
     Active Substance: AZATHIOPRINE
     Dosage: 75 MILLIGRAM, QD
     Dates: start: 20171117
  11. PENTASA [Concomitant]
     Active Substance: MESALAMINE
     Dosage: 1000 MILLIGRAM, BID
     Dates: start: 20171117
  12. ASACOL [Concomitant]
     Active Substance: MESALAMINE
     Dates: start: 20190424, end: 20191118

REACTIONS (1)
  - Large intestine perforation [Recovered/Resolved]

NARRATIVE: CASE EVENT DATE: 20220301
